FAERS Safety Report 9891881 (Version 3)
Quarter: 2014Q1

REPORT INFORMATION
  Report Type: Report from Study
  Country: DE (occurrence: DE)
  Receive Date: 20140212
  Receipt Date: 20140213
  Transmission Date: 20141002
  Serious: Yes (Hospitalization, Other)
  Sender: FDA-Public Use
  Company Number: PHHY2013DE014052

PATIENT
  Sex: Male
  Weight: 97 kg

DRUGS (1)
  1. CGP 57148B [Suspect]
     Indication: GASTROINTESTINAL STROMAL TUMOUR
     Dosage: 400 MG, UNK
     Route: 048
     Dates: start: 20110826, end: 20120930

REACTIONS (5)
  - Prostatic adenoma [Recovered/Resolved]
  - Urinary tract infection [Recovered/Resolved]
  - Benign prostatic hyperplasia [Recovered/Resolved]
  - Phimosis [Recovered/Resolved]
  - Calculus bladder [Recovered/Resolved]
